FAERS Safety Report 7782521-7 (Version None)
Quarter: 2011Q3

REPORT INFORMATION
  Report Type: 
  Country: None (occurrence: None)
  Receive Date: 20110928
  Receipt Date: 20110915
  Transmission Date: 20111222
  Serious: Yes (Life-Threatening, Hospitalization, Other)
  Sender: FDA-Public Use
  Company Number: CH-ELI_LILLY_AND_COMPANY-CH201109006676

PATIENT
  Age: 55 Year
  Sex: Male

DRUGS (11)
  1. QUILONORM                          /00033702/ [Concomitant]
     Dosage: 1350 MG, QD
     Route: 048
     Dates: start: 20110530, end: 20110602
  2. SIMVASTATIN [Concomitant]
  3. ZYPREXA [Suspect]
     Indication: BIPOLAR I DISORDER
     Dosage: 10 MG, UNK
     Route: 048
     Dates: start: 20110530
  4. LORAZEPAM [Concomitant]
     Dosage: 1 MG, QD
     Route: 048
     Dates: start: 20110530, end: 20110601
  5. ZYPREXA [Suspect]
     Dosage: 15 MG, UNK
     Route: 048
     Dates: start: 20110604
  6. ASPIRIN [Concomitant]
     Dosage: 100 MG, QD
     Route: 048
  7. LORAZEPAM [Concomitant]
     Dosage: 4 MG, QD
     Route: 048
     Dates: start: 20110602, end: 20110604
  8. QUILONORM                          /00033702/ [Concomitant]
     Dosage: 1125 MG, QD
     Route: 048
     Dates: start: 20110603
  9. ZYPREXA [Suspect]
     Dosage: 20 MG, UNK
     Route: 048
     Dates: start: 20110531, end: 20110603
  10. QUILONORM                          /00033702/ [Concomitant]
     Dosage: 900 MG, QD
     Route: 048
     Dates: start: 20110520, end: 20110529
  11. LORAZEPAM [Concomitant]
     Dosage: 8 MG, QD
     Route: 048
     Dates: start: 20110605, end: 20110606

REACTIONS (5)
  - DRUG INTERACTION [None]
  - NEUROLEPTIC MALIGNANT SYNDROME [None]
  - CEREBRAL ATROPHY [None]
  - PNEUMONIA ASPIRATION [None]
  - COMA [None]
